FAERS Safety Report 4753850-6 (Version None)
Quarter: 2005Q3

REPORT INFORMATION
  Report Type: 
  Country: None (occurrence: None)
  Receive Date: 20050826
  Receipt Date: 20010803
  Transmission Date: 20060218
  Serious: Yes (Hospitalization)
  Sender: FDA-Public Use
  Company Number: FR-GLAXOSMITHKLINE-B0116439B

PATIENT
  Age: 1 Day
  Sex: Male
  Weight: 4.2 kg

DRUGS (6)
  1. RETROVIR [Suspect]
     Indication: ANTIVIRAL PROPHYLAXIS
     Route: 048
     Dates: start: 20001122, end: 20010103
  2. RETROVIR [Suspect]
     Dates: start: 20001122, end: 20001122
  3. RETROVIR [Suspect]
     Indication: HIV INFECTION
  4. COMBIVIR [Suspect]
     Indication: HIV INFECTION
  5. COLPOSEPTINE [Concomitant]
  6. DEBRIDAT [Concomitant]

REACTIONS (15)
  - BLOOD CREATINE PHOSPHOKINASE INCREASED [None]
  - BLOOD KETONE BODY INCREASED [None]
  - BLOOD KETONE BODY PRESENT [None]
  - BLOOD LACTIC ACID INCREASED [None]
  - CAESAREAN SECTION [None]
  - CANDIDIASIS [None]
  - DRUG EXPOSURE DURING PREGNANCY [None]
  - GAIT DISTURBANCE [None]
  - LABORATORY TEST ABNORMAL [None]
  - LACTATE PYRUVATE RATIO INCREASED [None]
  - MACROCYTOSIS [None]
  - MACROSOMIA [None]
  - METABOLIC DISORDER [None]
  - NEUTROPENIA [None]
  - REGURGITATION OF FOOD [None]
